FAERS Safety Report 9030589 (Version 2)
Quarter: 2013Q1

REPORT INFORMATION
  Report Type: Spontaneous
  Country: US (occurrence: US)
  Receive Date: 20130123
  Receipt Date: 20130301
  Transmission Date: 20140127
  Serious: Yes (Hospitalization)
  Sender: FDA-Public Use
  Company Number: US-ELI_LILLY_AND_COMPANY-US201301006542

PATIENT
  Sex: Female
  Weight: 91.61 kg

DRUGS (2)
  1. ADCIRCA [Suspect]
     Indication: PULMONARY HYPERTENSION
     Dosage: 20 MG, UNK
     Route: 048
     Dates: start: 20121215, end: 20130116
  2. PROCARDIA                          /00340701/ [Concomitant]
     Dosage: 60 MG, QD

REACTIONS (1)
  - Pulmonary hypertension [Recovering/Resolving]
